FAERS Safety Report 11124261 (Version 1)
Quarter: 2015Q2

REPORT INFORMATION
  Report Type: Spontaneous
  Country: DE (occurrence: DE)
  Receive Date: 20150520
  Receipt Date: 20150520
  Transmission Date: 20150821
  Serious: Yes (Hospitalization, Other)
  Sender: FDA-Public Use
  Company Number: DE-DRREDDYS-GER/GER/15/0048031

PATIENT
  Age: 80 Year
  Sex: Male

DRUGS (12)
  1. RISPERIDONE. [Suspect]
     Active Substance: RISPERIDONE
     Indication: PRODUCT USED FOR UNKNOWN INDICATION
     Route: 048
     Dates: start: 20140521, end: 20140718
  2. EXELON [Suspect]
     Active Substance: RIVASTIGMINE TARTRATE
     Indication: PRODUCT USED FOR UNKNOWN INDICATION
     Dates: start: 20140522, end: 20140630
  3. PIPAMPERONE [Suspect]
     Active Substance: PIPAMPERONE
     Route: 048
     Dates: start: 20140926, end: 20140928
  4. PIPAMPERONE [Suspect]
     Active Substance: PIPAMPERONE
     Route: 048
     Dates: start: 20140805, end: 20140907
  5. PIPAMPERONE [Suspect]
     Active Substance: PIPAMPERONE
     Route: 048
     Dates: start: 20140917, end: 20140923
  6. PIPAMPERONE [Suspect]
     Active Substance: PIPAMPERONE
     Route: 048
     Dates: start: 20140924, end: 20140925
  7. RISPERIDONE. [Suspect]
     Active Substance: RISPERIDONE
     Route: 048
     Dates: start: 20140822, end: 20140923
  8. PIPAMPERONE [Suspect]
     Active Substance: PIPAMPERONE
     Indication: PRODUCT USED FOR UNKNOWN INDICATION
     Route: 048
     Dates: start: 20140719, end: 20140804
  9. RISPERIDONE. [Suspect]
     Active Substance: RISPERIDONE
     Route: 048
     Dates: start: 20140924, end: 20140925
  10. PIPAMPERONE [Suspect]
     Active Substance: PIPAMPERONE
     Route: 048
     Dates: start: 20140908, end: 20140916
  11. EXELON [Suspect]
     Active Substance: RIVASTIGMINE TARTRATE
     Dates: start: 20140701, end: 20140924
  12. RISPERIDONE. [Suspect]
     Active Substance: RISPERIDONE
     Route: 048
     Dates: start: 20140719, end: 20140821

REACTIONS (3)
  - Enuresis [Unknown]
  - Abnormal sleep-related event [Unknown]
  - Sinus bradycardia [Recovered/Resolved]

NARRATIVE: CASE EVENT DATE: 20140924
